FAERS Safety Report 15560440 (Version 1)
Quarter: 2018Q4

REPORT INFORMATION
  Report Type: Spontaneous
  Country: US (occurrence: US)
  Receive Date: 20181028
  Receipt Date: 20181028
  Transmission Date: 20190205
  Serious: Yes (Other)
  Sender: FDA-Public Use
  Company Number: None

PATIENT
  Age: 60 Year
  Sex: Female
  Weight: 59.4 kg

DRUGS (8)
  1. LOSARTAN POTASSIUM. [Concomitant]
     Active Substance: LOSARTAN POTASSIUM
  2. CENTRUM SILVER WOMAN 50+ [Concomitant]
  3. TRAVATAN Z [Suspect]
     Active Substance: TRAVOPROST
     Indication: GLAUCOMA
     Dosage: ?          QUANTITY:1 DROP(S);?
     Route: 047
     Dates: start: 20180221, end: 20180623
  4. TURMERIC CURCUMIN COMPLEX [Concomitant]
  5. CALTRATE WITH VITAMIN D [Concomitant]
     Active Substance: CALCIUM CARBONATE\CHOLECALCIFEROL
  6. VITAMIN B12 [Concomitant]
     Active Substance: CYANOCOBALAMIN
  7. LORATADINE. [Concomitant]
     Active Substance: LORATADINE
  8. MELATONIN [Concomitant]
     Active Substance: MELATONIN

REACTIONS (2)
  - Dark circles under eyes [None]
  - Iris hyperpigmentation [None]

NARRATIVE: CASE EVENT DATE: 20180623
